FAERS Safety Report 12241705 (Version 1)
Quarter: 2016Q2

REPORT INFORMATION
  Report Type: Spontaneous
  Country: US (occurrence: US)
  Receive Date: 20160406
  Receipt Date: 20160406
  Transmission Date: 20160815
  Serious: Yes (Hospitalization, Other)
  Sender: FDA-Public Use
  Company Number: US-AMGEN-USASP2016041545

PATIENT
  Age: 71 Year
  Sex: Female

DRUGS (10)
  1. BABY ASPIRIN [Concomitant]
     Active Substance: ASPIRIN
  2. ENBREL [Suspect]
     Active Substance: ETANERCEPT
     Indication: RHEUMATOID ARTHRITIS
     Dosage: 50 MG, QWK
     Route: 058
     Dates: start: 201504, end: 20160225
  3. ENBREL [Suspect]
     Active Substance: ETANERCEPT
     Dosage: 50 MG, QWK
     Route: 058
     Dates: start: 20160323
  4. SIMVASTATIN. [Concomitant]
     Active Substance: SIMVASTATIN
  5. ATENOLOL. [Concomitant]
     Active Substance: ATENOLOL
  6. NEXIUM [Concomitant]
     Active Substance: ESOMEPRAZOLE MAGNESIUM
  7. FOLIC ACID. [Concomitant]
     Active Substance: FOLIC ACID
  8. POTASSIUM [Concomitant]
     Active Substance: POTASSIUM
  9. METFORMIN [Concomitant]
     Active Substance: METFORMIN HYDROCHLORIDE
  10. METHOTREXATE [Concomitant]
     Active Substance: METHOTREXATE

REACTIONS (1)
  - Carotid artery occlusion [Recovered/Resolved]

NARRATIVE: CASE EVENT DATE: 201506
